FAERS Safety Report 9617240 (Version 1)
Quarter: 2013Q4

REPORT INFORMATION
  Report Type: Report from Study
  Country: BR (occurrence: BR)
  Receive Date: 20131011
  Receipt Date: 20131011
  Transmission Date: 20140711
  Serious: Yes (Hospitalization)
  Sender: FDA-Public Use
  Company Number: BR-ABBVIE-13P-020-1154799-00

PATIENT
  Age: 23 Year
  Sex: Female
  Weight: 89 kg

DRUGS (6)
  1. HUMIRA [Suspect]
     Indication: RHEUMATOID ARTHRITIS
     Route: 058
  2. PREDNISONE [Concomitant]
     Indication: PAIN
     Route: 048
  3. PREDNISONE [Concomitant]
     Indication: ARTHRITIS
  4. TECNOMET [Concomitant]
     Indication: ARTHRITIS
     Route: 048
  5. ISONIAZIDE [Concomitant]
     Indication: TUBERCULIN TEST POSITIVE
     Dosage: IN FASTING
     Route: 048
     Dates: start: 201306
  6. ISONIAZIDE [Concomitant]
     Indication: PROPHYLAXIS

REACTIONS (6)
  - Renal disorder [Unknown]
  - Urinary tract infection [Unknown]
  - Pyelonephritis [Unknown]
  - Pyrexia [Unknown]
  - Pain [Unknown]
  - Inflammation [Unknown]
